FAERS Safety Report 11911210 (Version 1)
Quarter: 2016Q1

REPORT INFORMATION
  Report Type: Spontaneous
  Country: US (occurrence: US)
  Receive Date: 20160112
  Receipt Date: 20160112
  Transmission Date: 20160526
  Serious: No
  Sender: FDA-Public Use
  Company Number: US-PFIZER INC-2015458006

PATIENT
  Age: 77 Year
  Sex: Female
  Weight: 63 kg

DRUGS (1)
  1. LYRICA [Suspect]
     Active Substance: PREGABALIN
     Dosage: 75 MG, 1X/DAY TABLET BY MOUTH
     Route: 048
     Dates: start: 2015, end: 2015

REACTIONS (4)
  - Tremor [Recovering/Resolving]
  - Drug ineffective [Recovering/Resolving]
  - Pruritus [Recovering/Resolving]
  - Cystitis [Recovering/Resolving]
